FAERS Safety Report 7805149-9 (Version None)
Quarter: 2011Q4

REPORT INFORMATION
  Report Type: 
  Country: None (occurrence: None)
  Receive Date: 20111010
  Receipt Date: 20110930
  Transmission Date: 20120403
  Serious: Yes (Other)
  Sender: FDA-Public Use
  Company Number: PHEH2011US05574

PATIENT
  Age: 85 Year
  Sex: Female

DRUGS (5)
  1. FOSAMAX [Suspect]
  2. CALCIUM CARBONATE [Concomitant]
     Dosage: UNK
  3. VITAMIN D [Concomitant]
  4. CALCIUM CARBONATE [Suspect]
  5. RECLAST [Suspect]
     Dosage: UNK
     Route: 042

REACTIONS (3)
  - HIP FRACTURE [None]
  - FALL [None]
  - TONGUE DISORDER [None]
